FAERS Safety Report 19125646 (Version 3)
Quarter: 2021Q2

REPORT INFORMATION
  Report Type: Spontaneous
  Country: NL (occurrence: NL)
  Receive Date: 20210412
  Receipt Date: 20210428
  Transmission Date: 20210717
  Serious: Yes (Hospitalization, Other)
  Sender: FDA-Public Use
  Company Number: NL-ORGANON-O2104NLD000583

PATIENT
  Sex: Female
  Weight: 82 kg

DRUGS (1)
  1. IMPLANON [Suspect]
     Active Substance: ETONOGESTREL
     Indication: CONTRACEPTION
     Dosage: 2 IMPLANTS
     Dates: start: 201810

REACTIONS (2)
  - Nerve injury [Not Recovered/Not Resolved]
  - Device dislocation [Not Recovered/Not Resolved]
